FAERS Safety Report 8131050-X (Version None)
Quarter: 2012Q1

REPORT INFORMATION
  Report Type: 
  Country: None (occurrence: None)
  Receive Date: 20120209
  Receipt Date: 20120209
  Transmission Date: 20120608
  Serious: Yes (Hospitalization)
  Sender: FDA-Public Use
  Company Number: None

PATIENT
  Sex: Male
  Weight: 85.4 kg

DRUGS (1)
  1. CISPLATIN [Suspect]
     Dosage: 400 MG

REACTIONS (5)
  - ORAL PAIN [None]
  - ODYNOPHAGIA [None]
  - INADEQUATE ANALGESIA [None]
  - HYPERTENSION [None]
  - HYPOPHAGIA [None]
